FAERS Safety Report 19551410 (Version 1)
Quarter: 2021Q3

REPORT INFORMATION
  Report Type: Other
  Country: US (occurrence: US)
  Receive Date: 20210714
  Receipt Date: 20210714
  Transmission Date: 20211014
  Serious: Yes (Death, Life-Threatening, Hospitalization)
  Sender: FDA-Public Use
  Company Number: US-US-PROVELL PHARMACEUTICALS LLC-9249146

PATIENT
  Age: 40 Year
  Sex: Male

DRUGS (1)
  1. LEVOTHYROXINE SODIUM. [Suspect]
     Active Substance: LEVOTHYROXINE SODIUM
     Indication: PRODUCT USED FOR UNKNOWN INDICATION

REACTIONS (11)
  - Left ventricular dysfunction [Unknown]
  - Atrial fibrillation [Unknown]
  - Acute kidney injury [Unknown]
  - Cardiomyopathy [Unknown]
  - Drug abuse [Fatal]
  - Thyroxine decreased [Unknown]
  - Blood thyroid stimulating hormone decreased [Unknown]
  - Respiratory failure [Unknown]
  - Rhabdomyolysis [Unknown]
  - Multiple organ dysfunction syndrome [Fatal]
  - Tri-iodothyronine increased [Unknown]
